FAERS Safety Report 5163855-1 (Version None)
Quarter: 2006Q4

REPORT INFORMATION
  Report Type: 
  Country: None (occurrence: None)
  Receive Date: 20061124
  Receipt Date: 20061113
  Transmission Date: 20070319
  Serious: Yes (Other)
  Sender: FDA-Public Use
  Company Number: 2006112339

PATIENT
  Sex: Male
  Weight: 70.3075 kg

DRUGS (2)
  1. BEXTRA [Suspect]
     Indication: BACK PAIN
     Dates: start: 20020201
  2. BEXTRA [Suspect]
     Indication: INFLAMMATION
     Dates: start: 20020201

REACTIONS (6)
  - CARDIOVASCULAR DISORDER [None]
  - INTERVERTEBRAL DISC DISORDER [None]
  - MYALGIA [None]
  - NERVE COMPRESSION [None]
  - SENSORY DISTURBANCE [None]
  - SPINAL FRACTURE [None]
